FAERS Safety Report 12093341 (Version 1)
Quarter: 2016Q1

REPORT INFORMATION
  Report Type: Spontaneous
  Country: US (occurrence: None)
  Receive Date: 20160218
  Receipt Date: 20160218
  Transmission Date: 20160526
  Serious: Yes (Other)
  Sender: FDA-Public Use
  Company Number: None

PATIENT
  Age: 61 Year
  Sex: Female
  Weight: 95.26 kg

DRUGS (1)
  1. CEFDROXIL 500 MG NORTHSTAR [Suspect]
     Active Substance: CEFADROXIL
     Indication: POSTOPERATIVE CARE
     Dosage: TAKEN BY MOUTH
     Dates: start: 20160113, end: 20160115

REACTIONS (4)
  - Paraesthesia oral [None]
  - Tongue coated [None]
  - Product odour abnormal [None]
  - Toothache [None]

NARRATIVE: CASE EVENT DATE: 20160115
